FAERS Safety Report 7883374-9 (Version None)
Quarter: 2011Q4

REPORT INFORMATION
  Report Type: 
  Country: None (occurrence: None)
  Receive Date: 20111102
  Receipt Date: 20111102
  Transmission Date: 20120403
  Serious: Yes (Hospitalization, Other)
  Sender: FDA-Public Use
  Company Number: None

PATIENT
  Sex: Male

DRUGS (2)
  1. CELEBREX [Suspect]
     Indication: ARTHRITIS
     Dosage: ONE
     Route: 048
  2. PLAVIX [Concomitant]

REACTIONS (8)
  - FEELING ABNORMAL [None]
  - BLOOD GLUCOSE INCREASED [None]
  - GAIT DISTURBANCE [None]
  - INCOHERENT [None]
  - YELLOW SKIN [None]
  - ANAL HAEMORRHAGE [None]
  - TREMOR [None]
  - BLOOD PRESSURE DECREASED [None]
